FAERS Safety Report 24735408 (Version 1)
Quarter: 2024Q4

REPORT INFORMATION
  Report Type: Spontaneous
  Country: ES (occurrence: ES)
  Receive Date: 20241215
  Receipt Date: 20241215
  Transmission Date: 20250115
  Serious: Yes (Death, Other)
  Sender: AMGEN
  Company Number: ES-AMGEN-ESPSP2024240934

PATIENT

DRUGS (1)
  1. ROMIPLOSTIM [Suspect]
     Active Substance: ROMIPLOSTIM
     Indication: Immune thrombocytopenia
     Dosage: UNK
     Route: 065

REACTIONS (10)
  - Neoplasm progression [Fatal]
  - Acute kidney injury [Fatal]
  - Hepatocellular carcinoma [Unknown]
  - Rectal neoplasm [Unknown]
  - Adenocarcinoma pancreas [Unknown]
  - Huerthle cell carcinoma [Unknown]
  - Deep vein thrombosis [Unknown]
  - Hypertensive crisis [Unknown]
  - Infection [Unknown]
  - Hyperglycaemia [Unknown]
